FAERS Safety Report 9571228 (Version 1)
Quarter: 2013Q4

REPORT INFORMATION
  Report Type: Report from Study
  Country: US (occurrence: US)
  Receive Date: 20131001
  Receipt Date: 20131001
  Transmission Date: 20140711
  Serious: Yes (Other)
  Sender: FDA-Public Use
  Company Number: US-ROCHE-1281817

PATIENT
  Sex: Male
  Weight: 84.44 kg

DRUGS (7)
  1. ZELBORAF [Suspect]
     Indication: METASTATIC MALIGNANT MELANOMA
     Route: 048
     Dates: start: 20121204
  2. ZELBORAF [Suspect]
     Route: 048
  3. ALIGN [Concomitant]
  4. ASPIRIN [Concomitant]
  5. CENTRUM SILVER ULTRA MEN^S [Concomitant]
  6. METOPROLOL TARTRATE [Concomitant]
  7. PROGRAF [Concomitant]

REACTIONS (14)
  - Renal failure acute [Unknown]
  - Headache [Unknown]
  - Diarrhoea [Unknown]
  - Fatigue [Unknown]
  - Abdominal distension [Unknown]
  - Increased tendency to bruise [Unknown]
  - Anxiety [Unknown]
  - Rash pruritic [Unknown]
  - Dehydration [Unknown]
  - Prescribed underdose [Unknown]
  - Increased appetite [Unknown]
  - Oedema peripheral [Unknown]
  - Gout [Unknown]
  - Erythema [Unknown]
